FAERS Safety Report 9740094 (Version 1)
Quarter: 2013Q4

REPORT INFORMATION
  Report Type: Spontaneous
  Country: JP (occurrence: JP)
  Receive Date: 20131209
  Receipt Date: 20131209
  Transmission Date: 20140711
  Serious: Yes (Other)
  Sender: FDA-Public Use
  Company Number: JP-GLAXOSMITHKLINE-B0951231A

PATIENT
  Age: 4 Month
  Sex: Female

DRUGS (2)
  1. ZOVIRAX [Suspect]
     Route: 042
     Dates: start: 201103, end: 201103
  2. CEFAZOLIN SODIUM [Suspect]
     Route: 042
     Dates: start: 201103, end: 201103

REACTIONS (1)
  - Drug-induced liver injury [Unknown]
